FAERS Safety Report 5654083-1 (Version None)
Quarter: 2008Q1

REPORT INFORMATION
  Report Type: 
  Country: None (occurrence: None)
  Receive Date: 20080306
  Receipt Date: 20071121
  Transmission Date: 20080703
  Serious: Yes (Other)
  Sender: FDA-Public Use
  Company Number: TW-PFIZER INC-2008017725

PATIENT
  Age: 28 Year
  Sex: Female

DRUGS (2)
  1. PREDNISOLONE [Suspect]
     Indication: ERYTHEMA
     Dosage: DAILY DOSE:20MG
     Dates: start: 20040501, end: 20041001
  2. METHOTREXATE [Suspect]
     Indication: ERYTHEMA
     Dosage: DAILY DOSE:10MG
     Dates: start: 20040401, end: 20041001

REACTIONS (1)
  - FIBROUS HISTIOCYTOMA [None]
